FAERS Safety Report 6610659-6 (Version None)
Quarter: 2010Q1

REPORT INFORMATION
  Report Type: 
  Country: None (occurrence: None)
  Receive Date: 20100302
  Receipt Date: 20100224
  Transmission Date: 20100710
  Serious: Yes (Other)
  Sender: FDA-Public Use
  Company Number: A0846243A

PATIENT
  Sex: Female

DRUGS (3)
  1. VENTOLIN [Suspect]
     Indication: ASTHMA
     Route: 055
  2. TYLENOL-500 [Concomitant]
  3. ADVAIR DISKUS 100/50 [Concomitant]

REACTIONS (3)
  - FLUSHING [None]
  - LIP SWELLING [None]
  - URTICARIA [None]
